FAERS Safety Report 7785810-5 (Version None)
Quarter: 2011Q3

REPORT INFORMATION
  Report Type: 
  Country: None (occurrence: None)
  Receive Date: 20110929
  Receipt Date: 20110914
  Transmission Date: 20111222
  Serious: No
  Sender: FDA-Public Use
  Company Number: US-B.I. PHARMACEUTICALS,INC./RIDGEFIELD-2011-BP-18091BP

PATIENT
  Age: 66 Year
  Sex: Male
  Weight: 86.18 kg

DRUGS (4)
  1. ATENOLOL [Concomitant]
     Dosage: 50 MG
  2. LISINOPRIL [Concomitant]
     Dosage: 5 MG
  3. PRADAXA [Suspect]
     Indication: ATRIAL FIBRILLATION
     Dosage: 300 MG
     Dates: start: 20101208, end: 20110314
  4. DIGOXIN [Concomitant]
     Dosage: 0.25 MG

REACTIONS (2)
  - ALOPECIA [None]
  - RASH [None]
